FAERS Safety Report 22036634 (Version 1)
Quarter: 2023Q1

REPORT INFORMATION
  Report Type: Spontaneous
  Country: US (occurrence: None)
  Receive Date: 20230223
  Receipt Date: 20230223
  Transmission Date: 20230418
  Serious: Yes (Hospitalization)
  Sender: FDA-Public Use
  Company Number: None

PATIENT
  Sex: Female

DRUGS (1)
  1. SIKLOS [Suspect]
     Active Substance: HYDROXYUREA
     Indication: Sickle cell anaemia
     Dosage: 750MG DAILY ORAL
     Route: 048
     Dates: start: 202207

REACTIONS (3)
  - Intentional dose omission [None]
  - Sickle cell anaemia with crisis [None]
  - Illness [None]
